FAERS Safety Report 6899982-8 (Version None)
Quarter: 2010Q3

REPORT INFORMATION
  Report Type: 
  Country: None (occurrence: None)
  Receive Date: 20100803
  Receipt Date: 20100729
  Transmission Date: 20110219
  Serious: Yes (Death, Hospitalization, Other)
  Sender: FDA-Public Use
  Company Number: FR-BRISTOL-MYERS SQUIBB COMPANY-15217771

PATIENT
  Age: 85 Year
  Sex: Male

DRUGS (8)
  1. COUMADIN [Suspect]
     Indication: CARDIOVASCULAR EVENT PROPHYLAXIS
     Route: 048
     Dates: end: 20100205
  2. KARDEGIC [Suspect]
     Indication: CARDIOVASCULAR EVENT PROPHYLAXIS
     Dosage: KARDEGIC POWDER FOR ORAL SOLUTION IN SINGLE-DOSE SACHET
     Route: 048
     Dates: end: 20100205
  3. NEXIUM [Concomitant]
     Indication: GASTROOESOPHAGEAL REFLUX DISEASE
     Route: 048
  4. EFFERALGAN [Concomitant]
     Indication: PAIN
     Route: 048
  5. MODOPAR [Concomitant]
     Indication: PARKINSON'S DISEASE
     Route: 048
  6. REQUIP [Concomitant]
     Indication: PARKINSON'S DISEASE
     Route: 048
  7. XALATAN [Concomitant]
     Route: 047
  8. ZOLPIDEM [Concomitant]
     Indication: INSOMNIA
     Dosage: STILNOX TABLET
     Route: 048

REACTIONS (4)
  - CARDIAC ARREST [None]
  - FALL [None]
  - HEAD INJURY [None]
  - SUBDURAL HAEMATOMA [None]
